FAERS Safety Report 22065333 (Version 1)
Quarter: 2023Q1

REPORT INFORMATION
  Report Type: Spontaneous
  Country: US (occurrence: US)
  Receive Date: 20230306
  Receipt Date: 20230306
  Transmission Date: 20230417
  Serious: No
  Sender: FDA-Public Use
  Company Number: US-SA-SAC20230302000771

PATIENT
  Age: 60 Year
  Sex: Female

DRUGS (2)
  1. CERDELGA [Interacting]
     Active Substance: ELIGLUSTAT
     Indication: Gaucher^s disease
     Dosage: 84 MG, BID
     Route: 048
     Dates: start: 202107
  2. FLUCONAZOLE [Interacting]
     Active Substance: FLUCONAZOLE

REACTIONS (1)
  - Drug interaction [Unknown]
